FAERS Safety Report 14952325 (Version 3)
Quarter: 2019Q2

REPORT INFORMATION
  Report Type: Spontaneous
  Country: US (occurrence: US)
  Receive Date: 20180530
  Receipt Date: 20190531
  Transmission Date: 20190711
  Serious: Yes (Death)
  Sender: FDA-Public Use
  Company Number: US-PFIZER INC-2018215405

PATIENT
  Age: 93 Year
  Sex: Female

DRUGS (1)
  1. IBRANCE [Suspect]
     Active Substance: PALBOCICLIB
     Indication: METASTATIC LYMPHOMA
     Dosage: 75 MG, CYCLIC(75MG, THREE WEEKS ON, ONE WEEK OFF)

REACTIONS (2)
  - Blood pressure decreased [Unknown]
  - Death [Fatal]

NARRATIVE: CASE EVENT DATE: 20181229
